FAERS Safety Report 19609888 (Version 1)
Quarter: 2021Q3

REPORT INFORMATION
  Report Type: Report from Study
  Country: CZ (occurrence: CZ)
  Receive Date: 20210726
  Receipt Date: 20210726
  Transmission Date: 20211014
  Serious: Yes (Other)
  Sender: FDA-Public Use
  Company Number: CZ-MYLANLABS-2021M1044284

PATIENT
  Sex: Male

DRUGS (2)
  1. HULIO [Suspect]
     Active Substance: ADALIMUMAB-FKJP
     Indication: RHEUMATOID ARTHRITIS
     Dosage: 40 MILLIGRAM, BIMONTHLY
     Route: 058
     Dates: start: 20210430, end: 20210702
  2. METHOTREXATE. [Concomitant]
     Active Substance: METHOTREXATE
     Dosage: 30 MILLIGRAM, QW
     Dates: start: 20180601

REACTIONS (1)
  - Drug ineffective [Unknown]
